FAERS Safety Report 4799858-6 (Version None)
Quarter: 2005Q4

REPORT INFORMATION
  Report Type: 
  Country: None (occurrence: None)
  Receive Date: 20051013
  Receipt Date: 20051003
  Transmission Date: 20060501
  Serious: Yes (Hospitalization)
  Sender: FDA-Public Use
  Company Number: OXCD20050003

PATIENT
  Age: 50 Year
  Sex: Female

DRUGS (4)
  1. OXYCODONE [Suspect]
     Indication: CANCER PAIN
     Dosage: UNK, PO
     Route: 048
  2. OXYCONTIN [Suspect]
     Indication: CANCER PAIN
     Dosage: UNK PO
     Route: 048
  3. IXABEPILONE (BMS247550) [Concomitant]
  4. XELODA [Concomitant]

REACTIONS (2)
  - ABDOMINAL PAIN [None]
  - GASTROOESOPHAGEAL REFLUX DISEASE [None]
